FAERS Safety Report 19116178 (Version 1)
Quarter: 2021Q2

REPORT INFORMATION
  Report Type: Spontaneous
  Country: MA (occurrence: MA)
  Receive Date: 20210410
  Receipt Date: 20210410
  Transmission Date: 20210717
  Serious: Yes (Hospitalization)
  Sender: FDA-Public Use
  Company Number: MA-EPICPHARMA-MA-2021EPCLIT00360

PATIENT
  Age: 35 Year
  Sex: Female

DRUGS (4)
  1. AZITHROMYCIN ANHYDROUS. [Suspect]
     Active Substance: AZITHROMYCIN ANHYDROUS
     Indication: COVID-19
     Route: 065
  2. CHLOROQUINE. [Suspect]
     Active Substance: CHLOROQUINE
     Indication: COVID-19
     Route: 065
  3. LORAZEPAM. [Interacting]
     Active Substance: LORAZEPAM
     Indication: ANXIETY
     Route: 065
  4. HYDROXYCHLOROQUINE [Interacting]
     Active Substance: HYDROXYCHLOROQUINE
     Indication: COVID-19
     Route: 065

REACTIONS (6)
  - Panic attack [Recovered/Resolved]
  - Affect lability [Recovered/Resolved]
  - Palpitations [Recovered/Resolved]
  - Depersonalisation/derealisation disorder [Recovered/Resolved]
  - Insomnia [Recovered/Resolved]
  - Fear of death [Recovered/Resolved]
